FAERS Safety Report 6115654-1 (Version None)
Quarter: 2009Q1

REPORT INFORMATION
  Report Type: 
  Country: None (occurrence: None)
  Receive Date: 20090313
  Receipt Date: 20090309
  Transmission Date: 20090719
  Serious: Yes (Life-Threatening, Hospitalization, Other)
  Sender: FDA-Public Use
  Company Number: IL-ROXANE LABORATORIES, INC.-2009-RO-00215RO

PATIENT
  Age: 7 Year
  Sex: Female
  Weight: 15 kg

DRUGS (11)
  1. LIDOCAINE [Suspect]
     Indication: ADENOIDECTOMY
  2. ADRENALINE [Suspect]
     Indication: ADENOIDECTOMY
  3. SEVOFLURAN [Concomitant]
     Indication: INDUCTION AND MAINTENANCE OF ANAESTHESIA
  4. FENTANYL-25 [Concomitant]
     Indication: INDUCTION AND MAINTENANCE OF ANAESTHESIA
  5. OXYGEN [Concomitant]
     Indication: DYSPNOEA
  6. OXYGEN [Concomitant]
     Indication: ACUTE RESPIRATORY FAILURE
  7. DOPAMINE HCL [Concomitant]
     Indication: HYPOTENSION
  8. ANTIBIOTIC THERAPY [Concomitant]
     Indication: PNEUMONIA
  9. CORTICOSTEROIDS [Concomitant]
     Indication: ACUTE RESPIRATORY DISTRESS SYNDROME
  10. CORTICOSTEROIDS [Concomitant]
     Indication: PULMONARY FIBROSIS
  11. NITRIC OXIDE [Concomitant]
     Indication: ACUTE RESPIRATORY FAILURE

REACTIONS (10)
  - ACUTE RESPIRATORY DISTRESS SYNDROME [None]
  - ACUTE RESPIRATORY FAILURE [None]
  - BULBAR PALSY [None]
  - CEREBRAL HAEMORRHAGE [None]
  - ENCEPHALOMALACIA [None]
  - HYPOTENSION [None]
  - LEUKOPENIA [None]
  - PNEUMONIA [None]
  - PULMONARY FIBROSIS [None]
  - PYREXIA [None]
